FAERS Safety Report 5491834-3 (Version None)
Quarter: 2007Q4

REPORT INFORMATION
  Report Type: 
  Country: None (occurrence: None)
  Receive Date: 20071022
  Receipt Date: 20071012
  Transmission Date: 20080405
  Serious: Yes (Hospitalization)
  Sender: FDA-Public Use
  Company Number: DE-BRISTOL-MYERS SQUIBB COMPANY-13945316

PATIENT
  Age: 60 Year
  Sex: Female

DRUGS (7)
  1. CETUXIMAB [Suspect]
     Indication: SQUAMOUS CELL CARCINOMA
     Route: 042
     Dates: start: 20071011, end: 20071011
  2. CARBOPLATIN [Suspect]
     Indication: SQUAMOUS CELL CARCINOMA
     Dates: start: 20070926, end: 20070926
  3. DOCETAXEL [Suspect]
     Indication: SQUAMOUS CELL CARCINOMA
     Route: 042
     Dates: start: 20071011, end: 20071011
  4. LEVOTHYROXINE SODIUM [Concomitant]
     Route: 048
     Dates: start: 20070122
  5. ACC [Concomitant]
     Route: 048
  6. SPIRIVA [Concomitant]
     Route: 055
  7. FORADIL [Concomitant]
     Dosage: 2 DOSAGE FORM=2 DERMATOLOGICAL PREPARATION
     Route: 055

REACTIONS (1)
  - HYPERTENSIVE CRISIS [None]
